FAERS Safety Report 23300048 (Version 1)
Quarter: 2023Q4

REPORT INFORMATION
  Report Type: Spontaneous
  Country: US (occurrence: US)
  Receive Date: 20231215
  Receipt Date: 20231215
  Transmission Date: 20240110
  Serious: Yes (Other)
  Sender: FDA-Public Use
  Company Number: US-BRISTOL-MYERS SQUIBB COMPANY-2023-181695

PATIENT
  Age: 94 Year
  Sex: Female

DRUGS (1)
  1. POMALYST [Suspect]
     Active Substance: POMALIDOMIDE
     Indication: Plasma cell myeloma
     Dosage: TAKE 1 CAPSULE BY MOUTH ONCE DAILY FOR 7 DAYS ON AND 7 DAYS OFF ALTERNATING FOR 28 DAY CYCLE.
     Route: 048
     Dates: start: 202308

REACTIONS (2)
  - Haemoglobin decreased [Unknown]
  - Off label use [Unknown]
